FAERS Safety Report 7903365-9 (Version None)
Quarter: 2011Q4

REPORT INFORMATION
  Report Type: 
  Country: None (occurrence: None)
  Receive Date: 20111108
  Receipt Date: 20111108
  Transmission Date: 20120403
  Serious: No
  Sender: FDA-Public Use
  Company Number: None

PATIENT
  Age: 45 Year
  Sex: Female
  Weight: 58.6 kg

DRUGS (1)
  1. IMMUNE GLOBULIN NOS [Suspect]
     Indication: HYPOGAMMAGLOBULINAEMIA
     Dosage: 25 GM ONCE IV
     Route: 042
     Dates: start: 20110606, end: 20110927

REACTIONS (4)
  - RASH [None]
  - PRURITUS [None]
  - URTICARIA [None]
  - FEELING JITTERY [None]
